FAERS Safety Report 15653210 (Version 1)
Quarter: 2018Q4

REPORT INFORMATION
  Report Type: Spontaneous
  Country: ES (occurrence: ES)
  Receive Date: 20181124
  Receipt Date: 20181124
  Transmission Date: 20190205
  Serious: Yes (Life-Threatening)
  Sender: FDA-Public Use
  Company Number: ES-TEVA-2018-ES-977865

PATIENT
  Age: 52 Year
  Sex: Female

DRUGS (3)
  1. DICLOFENACO [Suspect]
     Active Substance: DICLOFENAC
  2. IBUPROFENO (1769A) [Suspect]
     Active Substance: IBUPROFEN
     Indication: UMBILICAL HERNIA
     Route: 048
     Dates: start: 20181028, end: 20181028
  3. DICLOFENACO (745A) [Suspect]
     Active Substance: DICLOFENAC
     Indication: UMBILICAL HERNIA
     Route: 065
     Dates: start: 20181028, end: 20181028

REACTIONS (1)
  - Anaphylactic shock [Recovered/Resolved]

NARRATIVE: CASE EVENT DATE: 20181028
